FAERS Safety Report 23663613 (Version 1)
Quarter: 2024Q1

REPORT INFORMATION
  Report Type: Spontaneous
  Country: CN (occurrence: CN)
  Receive Date: 20240322
  Receipt Date: 20240322
  Transmission Date: 20240409
  Serious: Yes (Hospitalization, Other)
  Sender: FDA-Public Use
  Company Number: CN-BAYER-2024A041540

PATIENT
  Age: 80 Year
  Sex: Male
  Weight: 70 kg

DRUGS (1)
  1. STIVARGA [Suspect]
     Active Substance: REGORAFENIB
     Indication: Gastrointestinal neoplasm
     Dosage: 120 MG, QD
     Route: 048
     Dates: start: 20231219

REACTIONS (11)
  - Hepatic function abnormal [Recovered/Resolved]
  - Loss of consciousness [None]
  - Basal ganglia haemorrhage [None]
  - Intraventricular haemorrhage [None]
  - Hydrocephalus [None]
  - Delirium [Recovering/Resolving]
  - Respiratory rate increased [None]
  - Blood pressure increased [None]
  - Pyrexia [None]
  - Heart rate increased [None]
  - Off label use [None]

NARRATIVE: CASE EVENT DATE: 20231219
